FAERS Safety Report 11625409 (Version 2)
Quarter: 2015Q4

REPORT INFORMATION
  Report Type: Report from Study
  Country: BR (occurrence: BR)
  Receive Date: 20151013
  Receipt Date: 20151014
  Transmission Date: 20160304
  Serious: Yes (Other)
  Sender: FDA-Public Use
  Company Number: PHHY2015BR123104

PATIENT
  Sex: Female
  Weight: 60 kg

DRUGS (4)
  1. EXELON PATCH [Suspect]
     Active Substance: RIVASTIGMINE
     Dosage: 1 DF, UNK
     Route: 062
  2. MEMANTINE HYDROCHLORIDE [Suspect]
     Active Substance: MEMANTINE HYDROCHLORIDE
     Indication: DEMENTIA ALZHEIMER^S TYPE
     Dosage: 10 MG, BEGINNING OF JANUARY, 1 TABLET IN THE MORNING AND 1 TABLET AT NIGHT
     Route: 065
  3. EXELON PATCH [Suspect]
     Active Substance: RIVASTIGMINE
     Indication: DEMENTIA ALZHEIMER^S TYPE
     Dosage: 1 DF, QD, 5 YEARS AGO AND STOPPED LAST YEAR
     Route: 062
  4. QUETIAPINE [Suspect]
     Active Substance: QUETIAPINE
     Indication: SEDATIVE THERAPY
     Dosage: 25 MG, STARTED THIS YEAR, 2 TABLETS AT NIGHT
     Route: 065

REACTIONS (2)
  - Dementia Alzheimer^s type [Unknown]
  - Condition aggravated [Unknown]
